FAERS Safety Report 10180072 (Version 1)
Quarter: 2014Q2

REPORT INFORMATION
  Report Type: Spontaneous
  Country: US (occurrence: US)
  Receive Date: 20140519
  Receipt Date: 20140519
  Transmission Date: 20141212
  Serious: No
  Sender: FDA-Public Use
  Company Number: US-AMGEN INC.-USASP2013075187

PATIENT
  Age: 67 Year
  Sex: Female

DRUGS (9)
  1. PROLIA [Suspect]
     Indication: BONE LOSS
     Dosage: UNK
     Route: 065
     Dates: start: 201305
  2. FEMARA [Concomitant]
  3. SYMBICORT [Concomitant]
  4. POTASSIUM [Concomitant]
  5. ZIAC                               /01166101/ [Concomitant]
  6. VITAMIN D                          /00107901/ [Concomitant]
  7. CALCIUM                            /00060701/ [Concomitant]
  8. BABY ASPIRIN [Concomitant]
  9. AROMATASE INHIBITORS [Concomitant]
     Dosage: UNK

REACTIONS (1)
  - Rash pruritic [Unknown]
